FAERS Safety Report 5480109-4 (Version None)
Quarter: 2007Q4

REPORT INFORMATION
  Report Type: 
  Country: None (occurrence: None)
  Receive Date: 20071009
  Receipt Date: 20071002
  Transmission Date: 20080405
  Serious: Yes (Other)
  Sender: FDA-Public Use
  Company Number: PHBS2007GB16563

PATIENT
  Age: 54 Year
  Sex: Female

DRUGS (7)
  1. IMATINIB [Suspect]
     Indication: CHRONIC MYELOID LEUKAEMIA
     Dosage: 800 MG/D
     Route: 065
  2. IMATINIB [Suspect]
     Dosage: 600 MG/D
     Route: 065
  3. IMATINIB [Suspect]
     Dosage: 400 MG/D
     Route: 065
  4. LEVOTHYROXINE SODIUM [Concomitant]
     Indication: HYPOTHYROIDISM
     Dosage: 125 UG/D
     Route: 065
  5. LEVOTHYROXINE SODIUM [Concomitant]
     Dosage: 150 UG/D
     Route: 065
  6. LEVOTHYROXINE SODIUM [Concomitant]
     Dosage: 175 UG/D
     Route: 065
  7. LEVOTHYROXINE SODIUM [Concomitant]
     Dosage: 200 UG/D
     Route: 065

REACTIONS (5)
  - ANTI-THYROID ANTIBODY POSITIVE [None]
  - BLOOD THYROID STIMULATING HORMONE INCREASED [None]
  - FATIGUE [None]
  - HYPOTHYROIDISM [None]
  - WEIGHT INCREASED [None]
